FAERS Safety Report 9723231 (Version 1)
Quarter: 2013Q4

REPORT INFORMATION
  Report Type: Spontaneous
  Country: US (occurrence: US)
  Receive Date: 20131202
  Receipt Date: 20131202
  Transmission Date: 20140711
  Serious: Yes (Hospitalization, Disabling, Other)
  Sender: FDA-Public Use
  Company Number: US-GILEAD-2008-0018369

PATIENT
  Sex: Male
  Weight: 67.13 kg

DRUGS (10)
  1. TRUVADA [Suspect]
     Indication: HIV INFECTION
     Route: 048
     Dates: start: 20080512, end: 20080912
  2. METFORMIN [Suspect]
     Indication: TYPE 2 DIABETES MELLITUS
     Route: 048
     Dates: end: 20080912
  3. GLIPIZIDE [Concomitant]
     Indication: TYPE 2 DIABETES MELLITUS
  4. PIOGLITAZONE [Concomitant]
     Indication: TYPE 2 DIABETES MELLITUS
     Dates: end: 20080912
  5. PRAVASTATIN [Concomitant]
     Indication: HYPERLIPIDAEMIA
  6. KALETRA [Concomitant]
     Indication: HIV INFECTION
     Dates: end: 20080912
  7. FUROSEMIDE [Concomitant]
     Indication: HYPERTENSION
     Dates: start: 20080912
  8. ROPIRINOL [Concomitant]
     Indication: RESTLESS LEGS SYNDROME
  9. FOSINOPRIL [Concomitant]
     Indication: HYPERTENSION
     Dates: end: 20080912
  10. HYDROCHLOROTHIAZIDE [Concomitant]
     Indication: HYPERTENSION
     Dates: end: 20080912

REACTIONS (2)
  - Renal failure acute [Recovered/Resolved with Sequelae]
  - Lactic acidosis [Recovered/Resolved with Sequelae]
